FAERS Safety Report 6855392-0 (Version None)
Quarter: 2010Q3

REPORT INFORMATION
  Report Type: 
  Country: None (occurrence: None)
  Receive Date: 20100719
  Receipt Date: 20100709
  Transmission Date: 20110219
  Serious: No
  Sender: FDA-Public Use
  Company Number: US-BIOGENIDEC-2010BI023773

PATIENT
  Sex: Female

DRUGS (1)
  1. TYSABRI [Suspect]
     Indication: MULTIPLE SCLEROSIS
     Route: 042
     Dates: start: 20061213

REACTIONS (6)
  - ALOPECIA [None]
  - FUNGAL INFECTION [None]
  - ONYCHOCLASIS [None]
  - ONYCHOMYCOSIS [None]
  - SKIN LACERATION [None]
  - URINARY TRACT INFECTION [None]
